FAERS Safety Report 6185432-6 (Version None)
Quarter: 2009Q2

REPORT INFORMATION
  Report Type: 
  Country: None (occurrence: None)
  Receive Date: 20090511
  Receipt Date: 20090504
  Transmission Date: 20091009
  Serious: Yes (Hospitalization, Other)
  Sender: FDA-Public Use
  Company Number: US-CELGENEUS-163-21880-09041313

PATIENT
  Sex: Female

DRUGS (3)
  1. REVLIMID [Suspect]
     Route: 048
     Dates: start: 20090201, end: 20090401
  2. REVLIMID [Suspect]
     Route: 048
     Dates: start: 20090401
  3. REVLIMID [Suspect]
     Route: 048
     Dates: start: 20090101, end: 20090201

REACTIONS (3)
  - FLUID OVERLOAD [None]
  - PNEUMONIA [None]
  - RENAL FAILURE [None]
